FAERS Safety Report 21671693 (Version 1)
Quarter: 2022Q4

REPORT INFORMATION
  Report Type: Report from Study
  Country: BR (occurrence: BR)
  Receive Date: 20221202
  Receipt Date: 20221202
  Transmission Date: 20230112
  Serious: Yes (Other)
  Sender: FDA-Public Use
  Company Number: BR-002147023-NVSC2022BR277476

PATIENT
  Sex: Male

DRUGS (2)
  1. TRILEPTAL [Suspect]
     Active Substance: OXCARBAZEPINE
     Indication: Seizure
     Dosage: UNK (STRENGTH: 600)
     Route: 065
  2. OXCARBAZEPINE [Concomitant]
     Active Substance: OXCARBAZEPINE
     Indication: Product used for unknown indication
     Dosage: UNK (STRENGTH: 600)
     Route: 065

REACTIONS (5)
  - Dementia Alzheimer^s type [Unknown]
  - Accident [Unknown]
  - Femur fracture [Recovered/Resolved with Sequelae]
  - Gait inability [Unknown]
  - Seizure [Recovered/Resolved with Sequelae]
